FAERS Safety Report 4852202-8 (Version None)
Quarter: 2005Q4

REPORT INFORMATION
  Report Type: 
  Country: None (occurrence: None)
  Receive Date: 20051213
  Receipt Date: 20051111
  Transmission Date: 20060501
  Serious: Yes (Other)
  Sender: FDA-Public Use
  Company Number: GB-GLAXOSMITHKLINE-B0400179A

PATIENT
  Age: 52 Year
  Sex: Female

DRUGS (3)
  1. REQUIP [Suspect]
     Indication: PARKINSON'S DISEASE
     Route: 048
     Dates: start: 20030101
  2. SINEMET [Concomitant]
  3. ENTACAPONE [Concomitant]

REACTIONS (13)
  - CONTUSION [None]
  - FACE INJURY [None]
  - FALL [None]
  - FOOD CRAVING [None]
  - GAMBLING [None]
  - HALLUCINATION [None]
  - INSOMNIA [None]
  - MOBILITY DECREASED [None]
  - OBSESSIVE THOUGHTS [None]
  - SUDDEN ONSET OF SLEEP [None]
  - SUICIDAL IDEATION [None]
  - WEIGHT INCREASED [None]
  - WEIGHT LOSS POOR [None]
